FAERS Safety Report 19904460 (Version 1)
Quarter: 2021Q3

REPORT INFORMATION
  Report Type: Spontaneous
  Country: US (occurrence: US)
  Receive Date: 20210930
  Receipt Date: 20210930
  Transmission Date: 20211014
  Serious: Yes (Other)
  Sender: FDA-Public Use
  Company Number: US-PFIZER INC-202101082693

PATIENT
  Age: 60 Year
  Sex: Male

DRUGS (2)
  1. RETACRIT [Suspect]
     Active Substance: EPOETIN ALFA-EPBX
     Indication: ANAEMIA OF CHRONIC DISEASE
  2. RETACRIT [Suspect]
     Active Substance: EPOETIN ALFA-EPBX
     Indication: END STAGE RENAL DISEASE
     Dosage: 10000 ML

REACTIONS (3)
  - Malaise [Unknown]
  - Renal failure [Unknown]
  - COVID-19 [Unknown]
